FAERS Safety Report 10179141 (Version 1)
Quarter: 2014Q2

REPORT INFORMATION
  Report Type: Spontaneous
  Country: US (occurrence: US)
  Receive Date: 20140519
  Receipt Date: 20140519
  Transmission Date: 20141212
  Serious: Yes (Hospitalization)
  Sender: FDA-Public Use
  Company Number: PHHY2014US058207

PATIENT
  Age: 63 Year
  Sex: Female

DRUGS (3)
  1. SULFAMETHOXAZOLE+TRIMETHOPRIM [Suspect]
     Indication: ANTIBIOTIC PROPHYLAXIS
     Route: 048
  2. IMMUNOSUPPRESSANTS [Concomitant]
     Indication: ANTIBIOTIC PROPHYLAXIS
  3. VALGANCICLOVIR [Concomitant]
     Indication: ANTIBIOTIC PROPHYLAXIS

REACTIONS (13)
  - Device related infection [Unknown]
  - Abdominal abscess [Recovered/Resolved]
  - Pseudomonas infection [Recovered/Resolved]
  - Chills [Recovered/Resolved]
  - Abdominal pain [Recovered/Resolved]
  - Diarrhoea [Recovered/Resolved]
  - Bloody discharge [Unknown]
  - Implant site inflammation [Unknown]
  - Abdominal distension [Recovered/Resolved]
  - Nausea [Recovered/Resolved]
  - Pyrexia [Recovered/Resolved]
  - Proteus infection [Recovered/Resolved]
  - Drug effect incomplete [Unknown]
